FAERS Safety Report 17954049 (Version 2)
Quarter: 2020Q3

REPORT INFORMATION
  Report Type: Spontaneous
  Country: NL (occurrence: NL)
  Receive Date: 20200629
  Receipt Date: 20200909
  Transmission Date: 20201103
  Serious: Yes (Other)
  Sender: FDA-Public Use
  Company Number: NL-AMGEN-NLDSP2020103540

PATIENT
  Age: 62 Year
  Sex: Male
  Weight: 88 kg

DRUGS (4)
  1. ENBREL [Suspect]
     Active Substance: ETANERCEPT
     Indication: RHEUMATOID ARTHRITIS
     Dosage: 25 MG, 2X/WEEK
     Route: 058
     Dates: start: 20010301, end: 20041221
  2. LOSEC [Concomitant]
     Active Substance: OMEPRAZOLE
     Dosage: 20 MG (CHRONIC USE)
     Route: 048
     Dates: start: 2000
  3. LIPITOR [Concomitant]
     Active Substance: ATORVASTATIN CALCIUM
     Dosage: 10 MG
     Route: 048
  4. TILDIEM [Concomitant]
     Active Substance: DILTIAZEM HYDROCHLORIDE
     Dosage: 1 DF
     Route: 048
     Dates: start: 1997

REACTIONS (3)
  - Cough [Recovering/Resolving]
  - Headache [Recovering/Resolving]
  - Pachymeningitis [Recovering/Resolving]

NARRATIVE: CASE EVENT DATE: 20040916
